FAERS Safety Report 25370116 (Version 1)
Quarter: 2025Q2

REPORT INFORMATION
  Report Type: Report from Study
  Country: US (occurrence: US)
  Receive Date: 20250528
  Receipt Date: 20250528
  Transmission Date: 20250717
  Serious: Yes (Hospitalization, Other)
  Sender: MALLINCKRODT
  Company Number: US-MALLINCKRODT-MNK202502232

PATIENT
  Age: 64 Year
  Sex: Male

DRUGS (1)
  1. CORTICOTROPIN [Suspect]
     Active Substance: CORTICOTROPIN
     Indication: Proteinuria
     Dosage: 80 UNITS
     Route: 058
     Dates: start: 20250409, end: 2025

REACTIONS (10)
  - Nephrolithiasis [Recovering/Resolving]
  - Blood glucose increased [Not Recovered/Not Resolved]
  - Appetite disorder [Unknown]
  - Dizziness [Unknown]
  - Weight decreased [Unknown]
  - Blood calcium decreased [Unknown]
  - Injection site pruritus [Unknown]
  - Rash [Unknown]
  - Insomnia [Unknown]
  - Blood potassium decreased [Unknown]

NARRATIVE: CASE EVENT DATE: 20250101
